FAERS Safety Report 4844726-4 (Version None)
Quarter: 2005Q4

REPORT INFORMATION
  Report Type: 
  Country: None (occurrence: None)
  Receive Date: 20051201
  Receipt Date: 20051201
  Transmission Date: 20060501
  Serious: Yes (Other)
  Sender: FDA-Public Use
  Company Number: None

PATIENT
  Age: 28 Year
  Sex: Female
  Weight: 81.6475 kg

DRUGS (2)
  1. STRATTERA [Suspect]
     Indication: ATTENTION DEFICIT/HYPERACTIVITY DISORDER
     Dosage: 1 PILL   ONCE DAILY   PO
     Route: 048
     Dates: start: 20041008, end: 20041108
  2. ZOLOFT [Concomitant]

REACTIONS (7)
  - DEPRESSED MOOD [None]
  - DRUG EFFECT DECREASED [None]
  - MOOD ALTERED [None]
  - POLLAKIURIA [None]
  - SUICIDAL IDEATION [None]
  - URINARY HESITATION [None]
  - URINARY RETENTION [None]
